FAERS Safety Report 4350583-5 (Version None)
Quarter: 2004Q2

REPORT INFORMATION
  Report Type: 
  Country: None (occurrence: None)
  Receive Date: 20040427
  Receipt Date: 20040413
  Transmission Date: 20050107
  Serious: Yes (Life-Threatening, Hospitalization)
  Sender: FDA-Public Use
  Company Number: 04P-056-0257419-00

PATIENT
  Age: 83 Year
  Sex: Female

DRUGS (1)
  1. DEPAKENE [Suspect]
     Indication: EPILEPSY
     Dosage: 500 MG, 2 IN 1 D, PER ORAL
     Route: 048
     Dates: start: 19970701, end: 20030601

REACTIONS (9)
  - ABNORMAL BEHAVIOUR [None]
  - BEDRIDDEN [None]
  - BONE PAIN [None]
  - CEREBRAL ATROPHY [None]
  - DECUBITUS ULCER [None]
  - DEMENTIA [None]
  - INFLAMMATION [None]
  - PARKINSONISM [None]
  - WEIGHT DECREASED [None]
